FAERS Safety Report 10573770 (Version 1)
Quarter: 2014Q4

REPORT INFORMATION
  Report Type: Spontaneous
  Country: US (occurrence: US)
  Receive Date: 20141110
  Receipt Date: 20141110
  Transmission Date: 20150529
  Serious: Yes (Other)
  Sender: FDA-Public Use
  Company Number: US-PAR PHARMACEUTICAL, INC-2014SCPR009471

PATIENT

DRUGS (1)
  1. DANTRIUM [Suspect]
     Active Substance: DANTROLENE SODIUM
     Indication: CEREBRAL VASOCONSTRICTION
     Dosage: 1.25 MG/KG, EVERY 6 HOURS, FOR 7 DAYS
     Route: 042

REACTIONS (2)
  - Product use issue [Unknown]
  - Brain oedema [Unknown]
